FAERS Safety Report 6262089-7 (Version None)
Quarter: 2009Q3

REPORT INFORMATION
  Report Type: 
  Country: None (occurrence: None)
  Receive Date: 20090707
  Receipt Date: 20090707
  Transmission Date: 20100115
  Serious: Yes (Death)
  Sender: FDA-Public Use
  Company Number: None

PATIENT
  Age: 35 Year
  Sex: Male
  Weight: 77.1115 kg

DRUGS (1)
  1. ZYPREXA [Suspect]
     Indication: BIPOLAR DISORDER
     Dosage: 5MG 1 A DAY PO
     Route: 048

REACTIONS (4)
  - APHASIA [None]
  - MULTI-ORGAN FAILURE [None]
  - PANCREATITIS [None]
  - TYPE 1 DIABETES MELLITUS [None]
